FAERS Safety Report 8449007-8 (Version None)
Quarter: 2012Q2

REPORT INFORMATION
  Report Type: 
  Country: None (occurrence: None)
  Receive Date: 20120619
  Receipt Date: 20120612
  Transmission Date: 20120825
  Serious: Yes (Other)
  Sender: FDA-Public Use
  Company Number: PHHY2012FR040017

PATIENT
  Sex: Female

DRUGS (2)
  1. LOVENOX [Concomitant]
  2. EXTAVIA [Suspect]
     Dosage: MATERNAL DOSE: 1 ML, QOD
     Route: 064

REACTIONS (2)
  - FOETAL EXPOSURE DURING PREGNANCY [None]
  - RESPIRATORY DISTRESS [None]
